FAERS Safety Report 10625910 (Version 4)
Quarter: 2015Q1

REPORT INFORMATION
  Report Type: Spontaneous
  Country: US (occurrence: US)
  Receive Date: 20141204
  Receipt Date: 20150202
  Transmission Date: 20150720
  Serious: Yes (Other)
  Sender: FDA-Public Use
  Company Number: US-PFIZER INC-2014331432

PATIENT
  Age: 45 Year
  Sex: Female
  Weight: 73 kg

DRUGS (3)
  1. EFFEXOR XR [Suspect]
     Active Substance: VENLAFAXINE HYDROCHLORIDE
     Indication: PANIC ATTACK
     Dosage: 75 MG, 1X/DAY (AT BED TIME)
     Route: 048
     Dates: start: 20141118, end: 201411
  2. EFFEXOR [Suspect]
     Active Substance: VENLAFAXINE HYDROCHLORIDE
     Indication: PANIC ATTACK
     Dosage: 75 MG, 1X/DAY (AT BED TIME)
     Route: 048
     Dates: start: 20141118, end: 201411
  3. XANAX [Suspect]
     Active Substance: ALPRAZOLAM
     Indication: PANIC ATTACK
     Dosage: 0.5 MG, 1X/DAY (AT BED TIME)
     Route: 048
     Dates: start: 20141118, end: 2014

REACTIONS (16)
  - Suicidal ideation [Recovered/Resolved]
  - Cold sweat [Recovered/Resolved]
  - Thirst [Unknown]
  - Agitation [Recovered/Resolved]
  - Feeling abnormal [Unknown]
  - Hallucination [Recovered/Resolved]
  - Gastrointestinal disorder [Unknown]
  - Musculoskeletal stiffness [Unknown]
  - Palpitations [Recovered/Resolved]
  - Confusional state [Recovered/Resolved]
  - Dyspnoea [Unknown]
  - Gastrointestinal sounds abnormal [Unknown]
  - Anxiety disorder [Unknown]
  - Tremor [Recovered/Resolved]
  - Diarrhoea [Unknown]
  - Thinking abnormal [Unknown]

NARRATIVE: CASE EVENT DATE: 20141118
